FAERS Safety Report 6715378-3 (Version None)
Quarter: 2010Q2

REPORT INFORMATION
  Report Type: 
  Country: None (occurrence: None)
  Receive Date: 20100507
  Receipt Date: 20100406
  Transmission Date: 20101027
  Serious: No
  Sender: FDA-Public Use
  Company Number: US-BAYER-201018922NA

PATIENT
  Age: 44 Year
  Sex: Female

DRUGS (10)
  1. ULTRAVIST 300 [Suspect]
     Indication: COMPUTERISED TOMOGRAM
     Dosage: TOTAL DAILY DOSE: 100 ML  UNIT DOSE: 100 ML
     Route: 042
     Dates: start: 20100405, end: 20100405
  2. VITAMIN D [Concomitant]
  3. NEXIUM [Concomitant]
  4. PROVENTIL-HFA [Concomitant]
  5. CERFUROXIM [Concomitant]
  6. ENALAPRIL MALEATE [Concomitant]
  7. LUMIGAN [Concomitant]
  8. NABUMETONE [Concomitant]
  9. MEDICATION ILLEGIBLE [Concomitant]
  10. MEDROL [Concomitant]

REACTIONS (3)
  - NAUSEA [None]
  - URTICARIA [None]
  - VOMITING [None]
